FAERS Safety Report 20547966 (Version 2)
Quarter: 2022Q1

REPORT INFORMATION
  Report Type: Spontaneous
  Country: CH (occurrence: CH)
  Receive Date: 20220303
  Receipt Date: 20220317
  Transmission Date: 20220423
  Serious: Yes (Hospitalization, Other)
  Sender: FDA-Public Use
  Company Number: CH-AMGEN-CHESP2019142733

PATIENT
  Age: 85 Year

DRUGS (8)
  1. XGEVA [Suspect]
     Active Substance: DENOSUMAB
     Indication: Hypercalcaemia of malignancy
     Dosage: UNK MILLIGRAM
     Route: 065
     Dates: start: 2018
  2. XGEVA [Suspect]
     Active Substance: DENOSUMAB
     Indication: Off label use
     Dosage: 120 MILLIGRAM
     Route: 065
     Dates: start: 2019
  3. PROLIA [Suspect]
     Active Substance: DENOSUMAB
     Indication: Hypercalcaemia of malignancy
     Dosage: UNK MILLIGRAM
     Route: 065
     Dates: start: 2018
  4. PROLIA [Suspect]
     Active Substance: DENOSUMAB
     Indication: Off label use
     Dosage: 60 MILLIGRAM
     Route: 065
     Dates: start: 2019
  5. CINACALCET HYDROCHLORIDE [Suspect]
     Active Substance: CINACALCET HYDROCHLORIDE
     Indication: Hypercalcaemia
     Dosage: 90 MILLIGRAM, BID
     Route: 065
     Dates: start: 2019
  6. CINACALCET HYDROCHLORIDE [Suspect]
     Active Substance: CINACALCET HYDROCHLORIDE
     Indication: Hyperparathyroidism primary
     Dosage: 30 MILLIGRAM, BID
     Route: 065
  7. ZOLEDRONIC ACID [Concomitant]
     Active Substance: ZOLEDRONIC ACID
     Dosage: UNK
     Dates: start: 2019
  8. CALCITONIN [Concomitant]
     Active Substance: CALCITONIN
     Dosage: UNK
     Dates: start: 2019

REACTIONS (10)
  - Acute kidney injury [Unknown]
  - Hypercalcaemia [Recovered/Resolved]
  - Off label use [Unknown]
  - Hypophosphataemia [Recovered/Resolved]
  - Blood creatinine abnormal [Unknown]
  - Nausea [Unknown]
  - Vomiting [Unknown]
  - Drug intolerance [Unknown]
  - Drug effective for unapproved indication [Unknown]
  - Dehydration [Unknown]

NARRATIVE: CASE EVENT DATE: 20190709
